FAERS Safety Report 6072528-2 (Version None)
Quarter: 2009Q1

REPORT INFORMATION
  Report Type: 
  Country: None (occurrence: None)
  Receive Date: 20090210
  Receipt Date: 20090206
  Transmission Date: 20090719
  Serious: Yes (Death, Other)
  Sender: FDA-Public Use
  Company Number: PHHO2007MX16812

PATIENT
  Sex: Female

DRUGS (2)
  1. TRILEPTAL [Suspect]
     Indication: EPILEPSY
     Dates: start: 20070601
  2. VALPROIC ACID [Concomitant]
     Indication: CONVULSION
     Dosage: UNK
     Dates: start: 20061201

REACTIONS (2)
  - AMAUROTIC FAMILIAL IDIOCY [None]
  - CONVULSION [None]
